FAERS Safety Report 8799187 (Version 1)
Quarter: 2012Q4

REPORT INFORMATION
  Report Type: 
  Country: US (occurrence: US)
  Receive Date: 20120920
  Receipt Date: 20120920
  Transmission Date: 20130627
  Serious: No
  Sender: FDA-Public Use
  Company Number: US-ASTRAZENECA-2012SE21069

PATIENT
  Age: 49 Year
  Sex: Female
  Weight: 72.6 kg

DRUGS (5)
  1. LISINOPRIL [Suspect]
     Route: 048
  2. MELOXICAM [Concomitant]
  3. PRAVASTATIN [Concomitant]
  4. PROZAC [Concomitant]
  5. SYNTHROID [Concomitant]

REACTIONS (4)
  - Oropharyngeal pain [Unknown]
  - Nervousness [Unknown]
  - Cough [Recovering/Resolving]
  - Feeling abnormal [Unknown]
